FAERS Safety Report 14933809 (Version 1)
Quarter: 2018Q2

REPORT INFORMATION
  Report Type: Spontaneous
  Country: US (occurrence: US)
  Receive Date: 20180524
  Receipt Date: 20180524
  Transmission Date: 20180711
  Serious: No
  Sender: FDA-Public Use
  Company Number: US-TARO-2017TAR01081

PATIENT
  Age: 5 Year
  Sex: Male
  Weight: 14.5 kg

DRUGS (4)
  1. MIRALAX [Concomitant]
     Active Substance: POLYETHYLENE GLYCOL 3350
     Dosage: 1/8 TO 1/4 TSP, 1X/DAY
  2. ALBUTEROL AND BUDESONIDE [Concomitant]
  3. ZOFRAN [Concomitant]
     Active Substance: ONDANSETRON HYDROCHLORIDE
     Dosage: UNK
     Dates: start: 20171216
  4. FEVERALL CHILDRENS [Suspect]
     Active Substance: ACETAMINOPHEN
     Indication: PYREXIA
     Dosage: 120 MG, THREE TIMES (11:45 PM 16-DEC-2017, 1:45 PM AND 8:05 PM 17-DEC-2017)
     Route: 054
     Dates: start: 20171216

REACTIONS (3)
  - Expired product administered [Not Recovered/Not Resolved]
  - Drug effect incomplete [Not Recovered/Not Resolved]
  - Abnormal faeces [Not Recovered/Not Resolved]

NARRATIVE: CASE EVENT DATE: 20171216
